FAERS Safety Report 15765715 (Version 1)
Quarter: 2018Q4

REPORT INFORMATION
  Report Type: Spontaneous
  Country: US (occurrence: US)
  Receive Date: 20181227
  Receipt Date: 20181227
  Transmission Date: 20190205
  Serious: Yes (Other)
  Sender: FDA-Public Use
  Company Number: US-SA-2018SA390091

PATIENT
  Age: 53 Year
  Sex: Male

DRUGS (13)
  1. AUBAGIO [Suspect]
     Active Substance: TERIFLUNOMIDE
     Dosage: 1 DF, QD
     Route: 048
     Dates: start: 20181009
  2. SEROQUEL [Concomitant]
     Active Substance: QUETIAPINE FUMARATE
  3. RANITIDINE. [Concomitant]
     Active Substance: RANITIDINE
  4. ATORVASTATIN [Concomitant]
     Active Substance: ATORVASTATIN
  5. GABAPENTIN. [Concomitant]
     Active Substance: GABAPENTIN
  6. DIVALPROEX [Concomitant]
     Active Substance: DIVALPROEX SODIUM
  7. DEPAKOTE [Concomitant]
     Active Substance: DIVALPROEX SODIUM
     Dosage: UNK MG
  8. LEVOTHYROXIN [Concomitant]
     Active Substance: LEVOTHYROXINE
  9. METOPROLOL. [Concomitant]
     Active Substance: METOPROLOL
     Dosage: 200 MG
  10. WARFARIN SODIUM. [Concomitant]
     Active Substance: WARFARIN SODIUM
  11. CLONAZEPAM. [Concomitant]
     Active Substance: CLONAZEPAM
  12. PANTOPRAZOLE [Concomitant]
     Active Substance: PANTOPRAZOLE
     Dosage: UNK MG
  13. SERTRALINE [Concomitant]
     Active Substance: SERTRALINE HYDROCHLORIDE

REACTIONS (1)
  - Multiple sclerosis relapse [Unknown]
